FAERS Safety Report 13265483 (Version 6)
Quarter: 2017Q3

REPORT INFORMATION
  Report Type: Report from Study
  Country: US (occurrence: US)
  Receive Date: 20170223
  Receipt Date: 20170801
  Transmission Date: 20171127
  Serious: Yes (Other)
  Sender: FDA-Public Use
  Company Number: US-PFIZER INC-2017037289

PATIENT
  Age: 58 Year
  Sex: Female

DRUGS (2)
  1. IBRANCE [Suspect]
     Active Substance: PALBOCICLIB
     Dosage: 100 MG, CYCLIC(DAILY FOR DAY 1-DAY 21 FOLLOWED BY 7 DAYS OFF EVERY 28 DAYS)
     Route: 048
     Dates: start: 20170328
  2. IBRANCE [Suspect]
     Active Substance: PALBOCICLIB
     Indication: BREAST CANCER
     Dosage: 125 MG, CYCLIC (DAILY FOR DAY 1 - DAY 21 FOLLOWED), (7 DAYS OFF EVERY 28 DAYS)
     Route: 048
     Dates: start: 20170116, end: 20170327

REACTIONS (8)
  - Bone marrow failure [Unknown]
  - White blood cell count decreased [Recovered/Resolved]
  - Eczema [Not Recovered/Not Resolved]
  - Drug dose omission [Unknown]
  - Fatigue [Not Recovered/Not Resolved]
  - Insomnia [Unknown]
  - Condition aggravated [Not Recovered/Not Resolved]
  - Rash [Unknown]

NARRATIVE: CASE EVENT DATE: 20170227
